FAERS Safety Report 9651943 (Version 1)
Quarter: 2013Q4

REPORT INFORMATION
  Report Type: Spontaneous
  Country: US (occurrence: US)
  Receive Date: 20131029
  Receipt Date: 20131029
  Transmission Date: 20140711
  Serious: Yes (Hospitalization)
  Sender: FDA-Public Use
  Company Number: US-B.I. PHARMACEUTICALS,INC./RIDGEFIELD-2013-BI-33802BP

PATIENT
  Sex: Female

DRUGS (15)
  1. COMBIVENT [Suspect]
     Indication: CHRONIC OBSTRUCTIVE PULMONARY DISEASE
     Dosage: STRENGTH: 20 MCG / 100 MCG; DAILY DOSE: 80 MCG/ 400 MCG
     Route: 055
     Dates: start: 201307
  2. PLAVIX [Concomitant]
     Route: 048
  3. AMBIEN [Concomitant]
     Route: 048
  4. SINGULAIR [Concomitant]
     Route: 048
  5. PRILOSEC [Concomitant]
     Indication: ABDOMINAL DISCOMFORT
     Route: 048
  6. DIOVAN [Concomitant]
     Indication: HYPERTENSION
     Route: 048
  7. NIASPAN [Concomitant]
     Route: 048
  8. CLARITIN [Concomitant]
     Route: 048
  9. ADVAIR [Concomitant]
     Route: 055
  10. PERCOCET [Concomitant]
     Indication: PAIN
     Route: 048
  11. ALBUTEROL NEBULIZER [Concomitant]
     Route: 055
  12. PROAIR [Concomitant]
     Route: 055
  13. DILTIAZEM [Concomitant]
     Dosage: 300 MG
     Route: 048
  14. ATORVASTATIN [Concomitant]
     Dosage: 80 MG
     Route: 048
  15. ASPIRIN [Concomitant]
     Dosage: 325 MG
     Route: 048

REACTIONS (3)
  - Carotid artery occlusion [Recovered/Resolved]
  - Dyspnoea [Not Recovered/Not Resolved]
  - Cough [Not Recovered/Not Resolved]
